FAERS Safety Report 22593813 (Version 1)
Quarter: 2023Q2

REPORT INFORMATION
  Report Type: Spontaneous
  Country: PE (occurrence: PE)
  Receive Date: 20230613
  Receipt Date: 20230613
  Transmission Date: 20230722
  Serious: Yes (Other)
  Sender: FDA-Public Use
  Company Number: PE-BoehringerIngelheim-2023-BI-242562

PATIENT
  Age: 70 Year
  Sex: Female
  Weight: 65 kg

DRUGS (3)
  1. HYDROCHLOROTHIAZIDE\TELMISARTAN [Suspect]
     Active Substance: HYDROCHLOROTHIAZIDE\TELMISARTAN
     Indication: Hypertension
     Dosage: 80/12.5 MG (AT MORNING).
     Route: 048
     Dates: start: 2013
  2. LEVOTHYROXINE [Concomitant]
     Active Substance: LEVOTHYROXINE
     Indication: Thyroid operation
     Dosage: AT MORNING
     Route: 048
     Dates: start: 1995
  3. AMLODIPINE [Concomitant]
     Active Substance: AMLODIPINE BESYLATE
     Indication: Hypertension
     Dosage: AT EVENING
     Route: 048

REACTIONS (6)
  - Spinal cord compression [Recovered/Resolved]
  - Paraplegia [Recovered/Resolved with Sequelae]
  - Arrhythmia [Recovered/Resolved]
  - Muscle spasms [Recovered/Resolved]
  - Product physical issue [Unknown]
  - Arrhythmia [Unknown]

NARRATIVE: CASE EVENT DATE: 20170101
